FAERS Safety Report 7602643-0 (Version None)
Quarter: 2011Q3

REPORT INFORMATION
  Report Type: 
  Country: None (occurrence: None)
  Receive Date: 20110712
  Receipt Date: 20110629
  Transmission Date: 20111222
  Serious: Yes (Other)
  Sender: FDA-Public Use
  Company Number: US-ELI_LILLY_AND_COMPANY-US201107000339

PATIENT
  Sex: Female

DRUGS (1)
  1. CYMBALTA [Suspect]
     Indication: DEPRESSION
     Dosage: 30 MG, QD
     Dates: start: 20101101

REACTIONS (7)
  - DRUG WITHDRAWAL SYNDROME [None]
  - SOMNOLENCE [None]
  - HYPOTENSION [None]
  - TEARFULNESS [None]
  - LOSS OF CONSCIOUSNESS [None]
  - APATHY [None]
  - ANGER [None]
